FAERS Safety Report 5907849-4 (Version None)
Quarter: 2008Q4

REPORT INFORMATION
  Report Type: 
  Country: None (occurrence: None)
  Receive Date: 20081003
  Receipt Date: 20080919
  Transmission Date: 20090506
  Serious: Yes (Hospitalization, Other)
  Sender: FDA-Public Use
  Company Number: US-PFIZER INC-2006126917

PATIENT
  Sex: Male
  Weight: 115.2 kg

DRUGS (23)
  1. CHANTIX [Suspect]
     Indication: SMOKING CESSATION THERAPY
     Dates: start: 20061010, end: 20080919
  2. CHANTIX [Suspect]
     Dates: start: 20080701
  3. CELEBREX [Suspect]
  4. TRICOR [Suspect]
     Indication: BLOOD CHOLESTEROL INCREASED
     Dates: start: 20080901
  5. ALL OTHER THERAPEUTIC PRODUCTS [Suspect]
     Indication: RENAL FAILURE
  6. GRIFULVIN [Suspect]
     Indication: FUNGAL INFECTION
     Dates: start: 20080301, end: 20080301
  7. ALL OTHER THERAPEUTIC PRODUCTS [Concomitant]
  8. MONTELUKAST SODIUM [Concomitant]
  9. TRAZODONE HCL [Concomitant]
  10. LOVASTATIN [Concomitant]
  11. FLUOXETINE [Concomitant]
  12. DOXYCYCLINE [Concomitant]
  13. TENIDAP SODIUM [Concomitant]
  14. TAMSULOSIN HCL [Concomitant]
     Indication: PROSTATIC DISORDER
  15. METFORMIN HCL [Concomitant]
  16. LISINOPRIL [Concomitant]
  17. TRAMADOL HCL [Concomitant]
  18. DICLOFENAC [Concomitant]
  19. DEPAKOTE [Concomitant]
  20. ACTOS [Concomitant]
  21. BYETTA [Concomitant]
  22. OXCARBAZEPINE [Concomitant]
  23. RISPERDAL [Concomitant]

REACTIONS (26)
  - ABDOMINAL DISCOMFORT [None]
  - ABNORMAL DREAMS [None]
  - BLOOD CHOLESTEROL INCREASED [None]
  - BLOOD POTASSIUM DECREASED [None]
  - CYSTITIS [None]
  - DIARRHOEA [None]
  - DRUG DEPENDENCE [None]
  - FATIGUE [None]
  - FEAR [None]
  - FUNGAL INFECTION [None]
  - GASTROINTESTINAL DISORDER [None]
  - HALLUCINATION [None]
  - HEADACHE [None]
  - ILL-DEFINED DISORDER [None]
  - KIDNEY INFECTION [None]
  - NAUSEA [None]
  - NERVOUSNESS [None]
  - PARANOIA [None]
  - PHOTOPHOBIA [None]
  - PROSTATE INFECTION [None]
  - RENAL FAILURE [None]
  - TREMOR [None]
  - TYPE 2 DIABETES MELLITUS [None]
  - URINARY TRACT INFECTION [None]
  - VISUAL IMPAIRMENT [None]
  - VOMITING [None]
